FAERS Safety Report 8878925 (Version 2)
Quarter: 2014Q3

REPORT INFORMATION
  Report Type: Spontaneous
  Country: US (occurrence: US)
  Receive Date: 20121026
  Receipt Date: 20140815
  Transmission Date: 20150326
  Serious: Yes (Hospitalization, Other)
  Sender: FDA-Public Use
  Company Number: US-009507513-2009SP043048

PATIENT
  Sex: Female
  Weight: 120.2 kg

DRUGS (2)
  1. VITAMINS (UNSPECIFIED) [Concomitant]
     Active Substance: VITAMINS
     Indication: GENERAL PHYSICAL CONDITION
     Dosage: UNK UNK, QD
  2. NUVARING [Suspect]
     Active Substance: ETHINYL ESTRADIOL\ETONOGESTREL
     Indication: CONTRACEPTION
     Dates: start: 200811, end: 200812

REACTIONS (14)
  - Blood cholesterol increased [Not Recovered/Not Resolved]
  - Peripheral venous disease [Unknown]
  - Headache [Unknown]
  - Deep vein thrombosis [Unknown]
  - Pulmonary embolism [Recovering/Resolving]
  - Upper respiratory tract infection [Unknown]
  - Intervertebral disc degeneration [Unknown]
  - Blood triglycerides increased [Not Recovered/Not Resolved]
  - Endometrial ablation [Unknown]
  - Deep vein thrombosis [Unknown]
  - Weight decreased [Unknown]
  - Sinusitis [Unknown]
  - Uterine dilation and curettage [Unknown]
  - Menorrhagia [Unknown]

NARRATIVE: CASE EVENT DATE: 2008
